FAERS Safety Report 7772979-1 (Version None)
Quarter: 2011Q3

REPORT INFORMATION
  Report Type: 
  Country: None (occurrence: None)
  Receive Date: 20110922
  Receipt Date: 20110531
  Transmission Date: 20111222
  Serious: No
  Sender: FDA-Public Use
  Company Number: US-ASTRAZENECA-2011SE33807

PATIENT
  Age: 48 Year
  Sex: Male
  Weight: 95.7 kg

DRUGS (4)
  1. SEROQUEL [Suspect]
     Indication: SLEEP DISORDER
     Route: 048
     Dates: start: 20070101
  2. LITHIUM [Concomitant]
  3. SEROQUEL [Suspect]
     Indication: BIPOLAR I DISORDER
     Route: 048
     Dates: start: 20070101
  4. XANAX [Concomitant]

REACTIONS (5)
  - INCREASED APPETITE [None]
  - FEELING HOT [None]
  - WEIGHT INCREASED [None]
  - OFF LABEL USE [None]
  - LIPIDS INCREASED [None]
